FAERS Safety Report 14815226 (Version 1)
Quarter: 2018Q2

REPORT INFORMATION
  Report Type: Spontaneous
  Country: DE (occurrence: DE)
  Receive Date: 20180426
  Receipt Date: 20180426
  Transmission Date: 20180711
  Serious: Yes (Life-Threatening, Hospitalization)
  Sender: FDA-Public Use
  Company Number: DE-ASTRAZENECA-2018SE51713

PATIENT
  Age: 21 Year
  Sex: Male

DRUGS (12)
  1. PREDNISOLON [Concomitant]
     Active Substance: PREDNISOLONE
  2. ESOMEPRAZOLE [Suspect]
     Active Substance: ESOMEPRAZOLE
     Dosage: 40 MILLIGRAMS
     Route: 048
  3. IVABRADINE [Concomitant]
     Active Substance: IVABRADINE
     Dosage: DAILY DOSE: 15 MG MILLGRAM(S) EVERY DAYS
  4. NALOXONE [Concomitant]
     Active Substance: NALOXONE
     Dosage: 10 GTT
  5. BACLOFEN. [Concomitant]
     Active Substance: BACLOFEN
  6. L-THYROXIN [Concomitant]
     Active Substance: LEVOTHYROXINE SODIUM
  7. COTRIMOXAZOL [Concomitant]
     Active Substance: SULFAMETHOXAZOLE\TRIMETHOPRIM
     Route: 042
     Dates: start: 20180315, end: 20180319
  8. SCOPOLAMIN [Concomitant]
     Active Substance: SCOPOLAMINE
  9. LORAZEPAM. [Concomitant]
     Active Substance: LORAZEPAM
  10. ESCITALOPRAM [Interacting]
     Active Substance: ESCITALOPRAM OXALATE
     Dosage: 5 MILLIGRAMS
     Route: 065
  11. LINEZOLID. [Interacting]
     Active Substance: LINEZOLID
     Indication: PNEUMONIA STAPHYLOCOCCAL
     Route: 042
     Dates: start: 20180315, end: 20180318
  12. LEVETIRACETAM. [Concomitant]
     Active Substance: LEVETIRACETAM
     Dosage: DAILY DOSE: 2 DF DOSAGE FORM EVERY DAYS

REACTIONS (4)
  - Body temperature increased [Not Recovered/Not Resolved]
  - Drug interaction [Not Recovered/Not Resolved]
  - Status epilepticus [Not Recovered/Not Resolved]
  - Serotonin syndrome [Not Recovered/Not Resolved]

NARRATIVE: CASE EVENT DATE: 20180317
